FAERS Safety Report 4642450-4 (Version None)
Quarter: 2005Q2

REPORT INFORMATION
  Report Type: 
  Country: None (occurrence: None)
  Receive Date: 20050422
  Receipt Date: 20050411
  Transmission Date: 20051028
  Serious: Yes (Other)
  Sender: FDA-Public Use
  Company Number: GB-ROCHE-401635

PATIENT
  Age: 54 Year
  Sex: Female

DRUGS (8)
  1. ORLISTAT [Suspect]
     Indication: OBESITY
     Route: 048
     Dates: start: 20041103, end: 20050104
  2. ATORVASTATIN CALCIUM [Suspect]
     Indication: BLOOD CHOLESTEROL INCREASED
     Route: 048
     Dates: start: 20030901, end: 20050104
  3. LISINOPRIL [Concomitant]
     Route: 048
  4. METFORMIN [Concomitant]
     Route: 048
  5. EPILIM [Concomitant]
     Route: 048
  6. GLIBENCLAMIDE [Concomitant]
     Route: 048
  7. IBUPROFEN [Concomitant]
     Route: 048
  8. FUROSEMIDE [Concomitant]
     Dosage: REPORTED AS 40MG 1-2 OD.
     Route: 048

REACTIONS (4)
  - BLOOD ALKALINE PHOSPHATASE INCREASED [None]
  - GAMMA-GLUTAMYLTRANSFERASE INCREASED [None]
  - JAUNDICE [None]
  - WEIGHT INCREASED [None]
